FAERS Safety Report 9320407 (Version 2)
Quarter: 2013Q4

REPORT INFORMATION
  Report Type: Spontaneous
  Country: US (occurrence: US)
  Receive Date: 20130530
  Receipt Date: 20131010
  Transmission Date: 20140711
  Serious: Yes (Hospitalization)
  Sender: FDA-Public Use
  Company Number: US-B.I. PHARMACEUTICALS,INC./RIDGEFIELD-2013-BI-14552BP

PATIENT
  Sex: Female
  Weight: 66.68 kg

DRUGS (9)
  1. PRADAXA [Suspect]
     Indication: ATRIAL FIBRILLATION
     Dosage: 300 MG
     Dates: start: 20110819, end: 20110829
  2. DIGOXIN [Concomitant]
     Dosage: 0.125 MG
  3. METOPROLOL ER [Concomitant]
     Dosage: 25 MG
  4. AMIODARONE [Concomitant]
     Dosage: 200 MG
  5. SYNTHROID [Concomitant]
     Dosage: 50 MCG
  6. BENADRYL [Concomitant]
     Route: 048
  7. XANAX [Concomitant]
     Route: 048
  8. PLAVIX [Concomitant]
     Dosage: 75 MG
  9. CARTIA XT [Concomitant]
     Dosage: 180 MG

REACTIONS (3)
  - Rectal haemorrhage [Recovered/Resolved]
  - Gastrointestinal haemorrhage [Recovered/Resolved]
  - Anaemia [Unknown]
